FAERS Safety Report 8372395-8 (Version None)
Quarter: 2012Q2

REPORT INFORMATION
  Report Type: 
  Country: None (occurrence: None)
  Receive Date: 20120521
  Receipt Date: 20120507
  Transmission Date: 20120825
  Serious: Yes (Other)
  Sender: FDA-Public Use
  Company Number: FR-JNJFOC-20120510021

PATIENT
  Sex: Male

DRUGS (4)
  1. CONCERTA [Suspect]
     Indication: DISTURBANCE IN ATTENTION
     Route: 048
     Dates: start: 20100101
  2. CONCERTA [Suspect]
     Route: 048
     Dates: start: 20120101
  3. CONCERTA [Suspect]
     Route: 048
     Dates: start: 20120101
  4. CONCERTA [Suspect]
     Indication: PSYCHOMOTOR HYPERACTIVITY
     Route: 048
     Dates: start: 20100101

REACTIONS (1)
  - GROWTH RETARDATION [None]
